FAERS Safety Report 20773827 (Version 6)
Quarter: 2022Q4

REPORT INFORMATION
  Report Type: Spontaneous
  Country: US (occurrence: US)
  Receive Date: 20220502
  Receipt Date: 20221114
  Transmission Date: 20230113
  Serious: Yes (Other)
  Sender: FDA-Public Use
  Company Number: US-SA-SAC20220429001067

PATIENT
  Age: 40 Year
  Sex: Male

DRUGS (16)
  1. ELOCTATE [Suspect]
     Active Substance: EFMOROCTOCOG ALFA
     Indication: Factor VIII deficiency
     Dosage: 6477 U, Q4D
     Route: 042
  2. ELOCTATE [Suspect]
     Active Substance: EFMOROCTOCOG ALFA
     Indication: Factor VIII deficiency
     Dosage: 6477 U, Q4D
     Route: 042
  3. ELOCTATE [Suspect]
     Active Substance: EFMOROCTOCOG ALFA
     Dosage: 6477 U, PRN
     Route: 042
  4. ELOCTATE [Suspect]
     Active Substance: EFMOROCTOCOG ALFA
     Dosage: 6477 U, PRN
     Route: 042
  5. ELOCTATE [Suspect]
     Active Substance: EFMOROCTOCOG ALFA
     Dosage: 6747 U, EVERY 4 DAYS AND EVERY 24 HOURS AS NEEDED
     Route: 042
     Dates: start: 202111
  6. ELOCTATE [Suspect]
     Active Substance: EFMOROCTOCOG ALFA
     Dosage: 6747 U, EVERY 4 DAYS AND EVERY 24 HOURS AS NEEDED
     Route: 042
     Dates: start: 202111
  7. ELOCTATE [Suspect]
     Active Substance: EFMOROCTOCOG ALFA
     Dosage: 6900 UNITS (6210-7590) PUSH EVERY 4 DAYS AND EVERY 24 HOURS AS NEEDED
     Route: 042
     Dates: start: 202111
  8. ELOCTATE [Suspect]
     Active Substance: EFMOROCTOCOG ALFA
     Dosage: 6900 UNITS (6210-7590) PUSH EVERY 4 DAYS AND EVERY 24 HOURS AS NEEDED
     Route: 042
     Dates: start: 202111
  9. ELOCTATE [Suspect]
     Active Substance: EFMOROCTOCOG ALFA
     Dosage: 6900 U, PRN
     Route: 042
     Dates: start: 20220426
  10. ELOCTATE [Suspect]
     Active Substance: EFMOROCTOCOG ALFA
     Dosage: 6900 U, PRN
     Route: 042
     Dates: start: 20220426
  11. ELOCTATE [Suspect]
     Active Substance: EFMOROCTOCOG ALFA
     Dosage: 6900 U, Q4D
     Route: 042
     Dates: start: 20220426
  12. ELOCTATE [Suspect]
     Active Substance: EFMOROCTOCOG ALFA
     Dosage: 6900 U, Q4D
     Route: 042
     Dates: start: 20220426
  13. ELOCTATE [Suspect]
     Active Substance: EFMOROCTOCOG ALFA
     Dosage: 245 U
     Route: 042
  14. ELOCTATE [Suspect]
     Active Substance: EFMOROCTOCOG ALFA
     Dosage: 245 U
     Route: 042
  15. ELOCTATE [Suspect]
     Active Substance: EFMOROCTOCOG ALFA
     Dosage: 7135 U, FREQUENCY: EVERY 4 DAYS AND EVERY 24 HOURS AS NEEDED FOR BLEEDS.
     Route: 042
     Dates: start: 20211119
  16. ELOCTATE [Suspect]
     Active Substance: EFMOROCTOCOG ALFA
     Dosage: 7135 U, FREQUENCY: EVERY 4 DAYS AND EVERY 24 HOURS AS NEEDED FOR BLEEDS.
     Route: 042
     Dates: start: 20211119

REACTIONS (2)
  - Haemorrhage [Not Recovered/Not Resolved]
  - Muscle haemorrhage [Unknown]

NARRATIVE: CASE EVENT DATE: 20220701
